FAERS Safety Report 8189787-2 (Version None)
Quarter: 2012Q1

REPORT INFORMATION
  Report Type: 
  Country: None (occurrence: None)
  Receive Date: 20120307
  Receipt Date: 20110401
  Transmission Date: 20120608
  Serious: No
  Sender: FDA-Public Use
  Company Number: US-GLAXOSMITHKLINE-A0921108A

PATIENT
  Age: 76 Year
  Sex: Male

DRUGS (3)
  1. AZILECT [Concomitant]
  2. REQUIP [Suspect]
     Indication: PARKINSON'S DISEASE
     Dosage: 2MG PER DAY
     Route: 048
     Dates: start: 20110101, end: 20110101
  3. SINEMET [Concomitant]

REACTIONS (2)
  - FATIGUE [None]
  - INSOMNIA [None]
